FAERS Safety Report 24408836 (Version 1)
Quarter: 2024Q4

REPORT INFORMATION
  Report Type: Spontaneous
  Country: FR (occurrence: FR)
  Receive Date: 20241007
  Receipt Date: 20241007
  Transmission Date: 20250115
  Serious: Yes (Hospitalization)
  Sender: BEIGENE
  Company Number: FR-BEIGENE-BGN-2024-015623

PATIENT

DRUGS (1)
  1. BRUKINSA [Suspect]
     Active Substance: ZANUBRUTINIB
     Indication: Chronic lymphocytic leukaemia
     Dosage: UNK
     Dates: start: 20240822, end: 20240918

REACTIONS (2)
  - Lung disorder [Recovering/Resolving]
  - Aspergillus infection [Recovering/Resolving]

NARRATIVE: CASE EVENT DATE: 20240917
